FAERS Safety Report 5305983-3 (Version None)
Quarter: 2007Q2

REPORT INFORMATION
  Report Type: 
  Country: None (occurrence: None)
  Receive Date: 20070424
  Receipt Date: 20070420
  Transmission Date: 20071010
  Serious: Yes (Hospitalization)
  Sender: FDA-Public Use
  Company Number: JP-BRISTOL-MYERS SQUIBB COMPANY-13753793

PATIENT
  Sex: Female

DRUGS (2)
  1. PARAPLATIN [Suspect]
     Indication: CERVIX CARCINOMA
     Route: 041
  2. IRINOTECAN HCL [Concomitant]
     Indication: CERVIX CARCINOMA

REACTIONS (1)
  - DEEP VEIN THROMBOSIS [None]
